FAERS Safety Report 7435473-3 (Version None)
Quarter: 2011Q2

REPORT INFORMATION
  Report Type: 
  Country: None (occurrence: None)
  Receive Date: 20110425
  Receipt Date: 20110415
  Transmission Date: 20111010
  Serious: Yes (Hospitalization)
  Sender: FDA-Public Use
  Company Number: CH-ASTRAZENECA-2011SE22077

PATIENT
  Age: 30 Year
  Sex: Female

DRUGS (8)
  1. SEROQUEL [Suspect]
     Route: 048
     Dates: start: 20110211, end: 20110211
  2. FLUOXETIN MEPHA [Suspect]
     Route: 048
     Dates: start: 20110120, end: 20110201
  3. TEMESTA [Concomitant]
     Route: 048
     Dates: start: 20110127, end: 20110208
  4. TEMESTA [Concomitant]
     Route: 048
     Dates: start: 20110209
  5. SEROQUEL [Suspect]
     Route: 048
     Dates: start: 20110208, end: 20110210
  6. FLUOXETIN MEPHA [Suspect]
     Route: 048
     Dates: start: 20110202, end: 20110215
  7. FLUOXETIN MEPHA [Suspect]
     Route: 048
     Dates: start: 20110216, end: 20110219
  8. SEROQUEL [Suspect]
     Route: 048
     Dates: start: 20110212, end: 20110214

REACTIONS (1)
  - DERMATITIS ALLERGIC [None]
